FAERS Safety Report 5375485-7 (Version None)
Quarter: 2007Q2

REPORT INFORMATION
  Report Type: 
  Country: None (occurrence: None)
  Receive Date: 20070629
  Receipt Date: 20070619
  Transmission Date: 20071010
  Serious: Yes (Death)
  Sender: FDA-Public Use
  Company Number: JP-SHR-JP-2007-023647

PATIENT
  Age: 68 Year
  Sex: Male

DRUGS (8)
  1. SOTALOL HCL [Suspect]
     Indication: VENTRICULAR TACHYCARDIA
     Dosage: 80 MG, 1X/DAY
     Route: 048
     Dates: start: 20050224, end: 20050302
  2. SOTALOL HCL [Suspect]
     Dosage: 80 MG, 2X/DAY
     Route: 048
     Dates: start: 20050303, end: 20061110
  3. ARTIST [Concomitant]
     Route: 048
     Dates: start: 20050224, end: 20061110
  4. BLOPRESS [Concomitant]
     Route: 048
     Dates: start: 20050224, end: 20061110
  5. DIART [Concomitant]
     Route: 048
     Dates: start: 20050224, end: 20061110
  6. NITROL [Concomitant]
     Route: 048
     Dates: start: 20050224, end: 20061110
  7. NORVASC [Concomitant]
     Route: 048
     Dates: start: 20050224, end: 20061110
  8. TICLOPIDINE HCL [Concomitant]
     Dosage: UNK, UNK
     Route: 048
     Dates: start: 20050224, end: 20061110

REACTIONS (2)
  - CEREBRAL HAEMORRHAGE [None]
  - CEREBRAL INFARCTION [None]
